FAERS Safety Report 8138229-1 (Version None)
Quarter: 2012Q1

REPORT INFORMATION
  Report Type: 
  Country: None (occurrence: None)
  Receive Date: 20120215
  Receipt Date: 20120211
  Transmission Date: 20120608
  Serious: No
  Sender: FDA-Public Use
  Company Number: PHHY2012SA011608

PATIENT
  Sex: Female

DRUGS (1)
  1. TASIGNA [Suspect]
     Indication: CHRONIC MYELOID LEUKAEMIA
     Dosage: 800 MG, DAILY
     Route: 048
     Dates: start: 20111101, end: 20120201

REACTIONS (3)
  - BLOOD ALKALINE PHOSPHATASE INCREASED [None]
  - RASH FOLLICULAR [None]
  - SKIN HYPERTROPHY [None]
